FAERS Safety Report 4641820-8 (Version None)
Quarter: 2005Q2

REPORT INFORMATION
  Report Type: 
  Country: None (occurrence: None)
  Receive Date: 20050421
  Receipt Date: 20050418
  Transmission Date: 20051028
  Serious: Yes (Hospitalization)
  Sender: FDA-Public Use
  Company Number: DE-MERCK-0504DEU00134

PATIENT
  Sex: Male

DRUGS (1)
  1. VIOXX [Suspect]
     Indication: BACK INJURY
     Route: 048
     Dates: start: 19990101, end: 20041001

REACTIONS (2)
  - CIRCULATORY COLLAPSE [None]
  - CORONARY ARTERY OCCLUSION [None]
